FAERS Safety Report 10238790 (Version 3)
Quarter: 2014Q2

REPORT INFORMATION
  Report Type: Spontaneous
  Country: US (occurrence: None)
  Receive Date: 20140612
  Receipt Date: 20140617
  Transmission Date: 20141212
  Serious: Yes (Death, Hospitalization, Other)
  Sender: FDA-Public Use
  Company Number: ADR-2014-00991

PATIENT
  Age: 54 Year
  Sex: Male

DRUGS (4)
  1. BACLOFEN INTRATHECAL [Suspect]
     Indication: SYRINGOMYELIA
  2. BACLOFEN INTRATHECAL [Suspect]
     Indication: PARAPARESIS
  3. BACLOFEN INTRATHECAL [Suspect]
     Indication: MEDICAL DEVICE IMPLANTATION
  4. BACLOFEN INTRATHECAL [Suspect]
     Indication: ENDOTRACHEAL INTUBATION

REACTIONS (6)
  - Electroencephalogram abnormal [None]
  - Accidental overdose [None]
  - Multi-organ failure [None]
  - Toxicity to various agents [None]
  - Neurotoxicity [None]
  - Unresponsive to stimuli [None]
